FAERS Safety Report 5154692-2 (Version None)
Quarter: 2006Q4

REPORT INFORMATION
  Report Type: 
  Country: None (occurrence: None)
  Receive Date: 20061113
  Receipt Date: 20061030
  Transmission Date: 20070319
  Serious: No
  Sender: FDA-Public Use
  Company Number: 2006-149957-NL

PATIENT
  Age: 73 Year
  Sex: Female

DRUGS (7)
  1. VECURONIUM BROMIDE [Suspect]
     Indication: INDUCTION OF ANAESTHESIA
     Dates: start: 20060601
  2. PROPOFOL [Concomitant]
  3. FENTANYL CITRATE [Concomitant]
  4. OXYGEN [Concomitant]
  5. SEVOFLURANE [Concomitant]
  6. ANTIMICROBIAL DRUG               (SBT/ABPC) [Concomitant]
  7. LIDOCAINE [Concomitant]

REACTIONS (1)
  - ANAPHYLACTIC SHOCK [None]
